FAERS Safety Report 9283477 (Version 1)
Quarter: 2013Q2

REPORT INFORMATION
  Report Type: Spontaneous
  Country: US (occurrence: US)
  Receive Date: 20130510
  Receipt Date: 20130510
  Transmission Date: 20140414
  Serious: No
  Sender: FDA-Public Use
  Company Number: US-GLAXOSMITHKLINE-A1011911A

PATIENT
  Age: 32 Year
  Sex: Female
  Weight: 51.4 kg

DRUGS (8)
  1. TYKERB [Suspect]
     Indication: PRODUCT USED FOR UNKNOWN INDICATION
     Dosage: 250MG THREE TIMES PER DAY
     Route: 048
  2. CYMBALTA [Concomitant]
  3. XELODA [Concomitant]
  4. DILAUDID [Concomitant]
  5. LORAZEPAM [Concomitant]
  6. FENTANYL [Concomitant]
  7. ZOFRAN [Concomitant]
  8. HERCEPTIN [Concomitant]

REACTIONS (6)
  - Fatigue [Unknown]
  - Nausea [Unknown]
  - Diarrhoea [Unknown]
  - Dry skin [Unknown]
  - Skin fissures [Unknown]
  - Drug administration error [Unknown]
